FAERS Safety Report 11205673 (Version 3)
Quarter: 2018Q4

REPORT INFORMATION
  Report Type: Spontaneous
  Country: US (occurrence: US)
  Receive Date: 20150622
  Receipt Date: 20181026
  Transmission Date: 20190204
  Serious: Yes (Hospitalization, Other)
  Sender: FDA-Public Use
  Company Number: US-PFIZER INC-2015203316

PATIENT
  Age: 49 Year
  Sex: Female
  Weight: 81 kg

DRUGS (6)
  1. GENOTROPIN MQ [Suspect]
     Active Substance: SOMATROPIN
     Indication: HYPOPITUITARISM
     Dosage: 0.2 MG, DAILY (7 DAYS)
     Route: 058
     Dates: start: 20140618, end: 201502
  2. VIVELLE-DOT [Concomitant]
     Active Substance: ESTRADIOL
     Dosage: 0.037 MG, UNK
  3. BELVIQ XR [Concomitant]
     Active Substance: LORCASERIN HYDROCHLORIDE
     Dosage: 20 MG, UNK
  4. MOTRIN IB [Concomitant]
     Active Substance: IBUPROFEN
     Dosage: 200 MG, UNK
  5. HYDROCORTISONE. [Concomitant]
     Active Substance: HYDROCORTISONE
     Dosage: 20 MG, UNK
     Dates: start: 200812
  6. SYNTHROID [Concomitant]
     Active Substance: LEVOTHYROXINE SODIUM
     Dosage: 88 UG, UNK
     Dates: start: 200812

REACTIONS (2)
  - Product use in unapproved indication [Not Recovered/Not Resolved]
  - Pituitary tumour [Recovered/Resolved]

NARRATIVE: CASE EVENT DATE: 20140618
